FAERS Safety Report 6370022-2 (Version None)
Quarter: 2009Q3

REPORT INFORMATION
  Report Type: 
  Country: None (occurrence: None)
  Receive Date: 20090923
  Receipt Date: 20071026
  Transmission Date: 20100115
  Serious: Yes (Other)
  Sender: FDA-Public Use
  Company Number: US-ASTRAZENECA-2006UW08072

PATIENT
  Age: 20000 Day
  Sex: Male
  Weight: 103.9 kg

DRUGS (32)
  1. SEROQUEL [Suspect]
     Indication: SCHIZOPHRENIA
     Dosage: 50 - 900  MG
     Route: 048
     Dates: start: 20031123
  2. SEROQUEL [Suspect]
     Indication: SLEEP DISORDER
     Dosage: 50 - 900  MG
     Route: 048
     Dates: start: 20031123
  3. SEROQUEL [Suspect]
     Route: 048
     Dates: start: 20040401, end: 20051001
  4. SEROQUEL [Suspect]
     Route: 048
     Dates: start: 20040401, end: 20051001
  5. LASIX [Concomitant]
     Route: 065
  6. HYDRODIURIL [Concomitant]
     Route: 065
  7. DEPAKOTE [Concomitant]
     Dosage: 500 - 1000 MG
     Route: 065
  8. COLCHICINE [Concomitant]
     Indication: GOUT
     Route: 065
     Dates: start: 20040605
  9. METHADONE HCL [Concomitant]
     Dosage: 30 - 150 MG
     Route: 065
  10. NORVASC [Concomitant]
     Route: 065
  11. ZYPREXA [Concomitant]
     Dosage: 10 - 40 MG
     Route: 065
  12. PAXIL [Concomitant]
     Route: 065
  13. TRAZODONE [Concomitant]
     Indication: MENTAL DISORDER
     Dosage: 50 - 150 MG
     Route: 065
  14. TYLENOL (CAPLET) [Concomitant]
     Dosage: 650 MG- 4 GM
     Route: 048
  15. HYDROXYZINE [Concomitant]
     Indication: ANXIETY
     Route: 065
  16. PHENOBARBITAL [Concomitant]
     Route: 065
  17. PHENOBARBITAL [Concomitant]
     Dosage: 60 - 90 MG
     Route: 030
  18. AMBIEN [Concomitant]
     Indication: INSOMNIA
     Route: 048
  19. LORAZEPAM [Concomitant]
     Dosage: 1 - 4 MG
     Route: 065
  20. LORAZEPAM [Concomitant]
     Dosage: 2 MG / 1 ML
     Route: 030
  21. BENADRYL [Concomitant]
     Indication: ANXIETY
     Route: 048
  22. BENADRYL [Concomitant]
     Indication: AGITATION
     Route: 048
  23. BENADRYL [Concomitant]
     Dosage: 25 MG / 0.5 ML EVERY 4 HOURS
     Route: 030
  24. BENADRYL [Concomitant]
     Dosage: 25 MG / 0.5 ML EVERY 4 HOURS
     Route: 030
  25. NICOTINE [Concomitant]
     Route: 062
  26. HALDOL [Concomitant]
     Indication: ANXIETY
     Dosage: 5 MG/ML EVERY 4 HOURS
     Route: 030
  27. HALDOL [Concomitant]
     Indication: AGITATION
     Dosage: 5 MG/ML EVERY 4 HOURS
     Route: 030
  28. HALDOL [Concomitant]
     Route: 048
  29. HALDOL [Concomitant]
     Route: 048
  30. ABILIFY [Concomitant]
     Dosage: 10 - 15 MG
     Route: 048
     Dates: start: 20040210
  31. K-DUR [Concomitant]
     Route: 048
  32. MAGNESIUM HYDROXIDE TAB [Concomitant]
     Indication: CONSTIPATION
     Route: 048

REACTIONS (2)
  - DIABETES MELLITUS [None]
  - PANCREATITIS [None]
